FAERS Safety Report 5471226-3 (Version None)
Quarter: 2007Q3

REPORT INFORMATION
  Report Type: 
  Country: None (occurrence: None)
  Receive Date: 20070928
  Receipt Date: 20070831
  Transmission Date: 20080115
  Serious: No
  Sender: FDA-Public Use
  Company Number: A0678119A

PATIENT
  Age: 36 Year
  Sex: Female

DRUGS (6)
  1. FLOVENT [Suspect]
     Indication: ASTHMA
     Route: 055
  2. ALBUTEROL [Concomitant]
  3. SEREVENT [Concomitant]
  4. LISINOPRIL [Concomitant]
  5. KARIVA [Concomitant]
  6. PHENTERMINE [Concomitant]

REACTIONS (1)
  - DRUG INEFFECTIVE [None]
